FAERS Safety Report 9886876 (Version 2)
Quarter: 2014Q2

REPORT INFORMATION
  Report Type: Spontaneous
  Country: US (occurrence: US)
  Receive Date: 20140210
  Receipt Date: 20140416
  Transmission Date: 20141212
  Serious: Yes (Other)
  Sender: FDA-Public Use
  Company Number: US-ABBVIE-14P-163-1198414-00

PATIENT
  Age: 32 Year
  Sex: Female
  Weight: 89.44 kg

DRUGS (8)
  1. LUPRON DEPOT [Suspect]
     Indication: ENDOMETRIOSIS
     Dates: start: 2000, end: 2000
  2. LUPRON DEPOT [Suspect]
     Dates: start: 2003, end: 2003
  3. LUPRON DEPOT [Suspect]
     Dates: start: 200410, end: 200410
  4. SYNTHROID [Suspect]
     Indication: HYPOTHYROIDISM
     Dates: start: 20070508, end: 20090810
  5. SYNTHROID [Suspect]
     Indication: HYPOTHYROIDISM
     Dates: start: 20090810
  6. SYNTHROID [Suspect]
     Indication: HYPOTHYROIDISM
  7. UNKNOWN ORAL CONTRACEPTIVE [Concomitant]
     Indication: ASSISTED FERTILISATION
     Dates: start: 2005, end: 2005
  8. LUPRON DEPOT-3 MONTH [Concomitant]
     Indication: ENDOMETRIOSIS

REACTIONS (3)
  - Abortion spontaneous [Unknown]
  - Uterine haemorrhage [Unknown]
  - Progesterone decreased [Not Recovered/Not Resolved]
